FAERS Safety Report 25589666 (Version 1)
Quarter: 2025Q3

REPORT INFORMATION
  Report Type: Spontaneous
  Country: US (occurrence: US)
  Receive Date: 20250722
  Receipt Date: 20250722
  Transmission Date: 20251021
  Serious: No
  Sender: AMNEAL
  Company Number: US-AMNEAL PHARMACEUTICALS-2025-AMRX-01630

PATIENT
  Sex: Female

DRUGS (1)
  1. ADRENACLICK [Suspect]
     Active Substance: EPINEPHRINE
     Indication: Anaphylactic reaction
     Route: 058
     Dates: start: 202504

REACTIONS (4)
  - Application site pain [Not Recovered/Not Resolved]
  - Application site rash [Unknown]
  - Application site swelling [Unknown]
  - Needle issue [Unknown]

NARRATIVE: CASE EVENT DATE: 20250401
